FAERS Safety Report 4505331-2 (Version None)
Quarter: 2004Q4

REPORT INFORMATION
  Report Type: 
  Country: None (occurrence: None)
  Receive Date: 20041015
  Receipt Date: 20040602
  Transmission Date: 20050328
  Serious: Yes (Other)
  Sender: FDA-Public Use
  Company Number: 2004026711

PATIENT
  Age: 75 Year
  Sex: Female
  Weight: 108 kg

DRUGS (6)
  1. NEURONTIN [Suspect]
     Indication: NERVOUSNESS
     Dosage: (DAILY), ORAL
     Route: 048
  2. ZOLOFT [Suspect]
     Indication: DEPRESSION
     Dosage: 25 MG (DAILY), ORAL
     Route: 048
     Dates: start: 20030101
  3. CLONZEPAM (CLONAZEPAM) [Concomitant]
  4. RABEPRAZOLE SODIUM [Concomitant]
  5. LANSOPRAZOLE [Concomitant]
  6. MAALOX (ALUMINIUM HYDROXIDE GEL, MAGNESIUM HYDROXIDE) [Concomitant]

REACTIONS (12)
  - AGORAPHOBIA [None]
  - CATARACT [None]
  - CHEST PAIN [None]
  - DEPRESSION [None]
  - DIARRHOEA [None]
  - DIZZINESS [None]
  - DRUG INEFFECTIVE [None]
  - FEELING ABNORMAL [None]
  - NERVOUSNESS [None]
  - PHOBIA [None]
  - VISION BLURRED [None]
  - VOMITING [None]
